FAERS Safety Report 9884477 (Version 1)
Quarter: 2014Q1

REPORT INFORMATION
  Report Type: Spontaneous
  Country: US (occurrence: None)
  Receive Date: 20140207
  Receipt Date: 20140207
  Transmission Date: 20141002
  Serious: Yes (Other)
  Sender: FDA-Public Use
  Company Number: None

PATIENT
  Age: 58 Year
  Sex: Female
  Weight: 134.27 kg

DRUGS (1)
  1. BUPROPION XL [Suspect]
     Indication: DEPRESSION
     Dosage: 1 PILL ONCE DAILY TAKEN BY MOUTH
     Route: 048
     Dates: start: 20140201, end: 20140205

REACTIONS (4)
  - Product substitution issue [None]
  - Product quality issue [None]
  - Dizziness postural [None]
  - Anxiety [None]
